FAERS Safety Report 7927726-7 (Version None)
Quarter: 2011Q4

REPORT INFORMATION
  Report Type: 
  Country: None (occurrence: None)
  Receive Date: 20111118
  Receipt Date: 20111108
  Transmission Date: 20120403
  Serious: Yes (Hospitalization)
  Sender: FDA-Public Use
  Company Number: NL-MEDIMMUNE-MEDI-0013913

PATIENT
  Sex: Male
  Weight: 4.035 kg

DRUGS (5)
  1. SYNAGIS [Suspect]
     Route: 030
     Dates: start: 20111108, end: 20111108
  2. LISINOPRIL [Concomitant]
  3. HYDROCHLOROTHIAZIDE [Concomitant]
  4. SYNAGIS [Suspect]
     Route: 030
     Dates: start: 20111011, end: 20111011
  5. DIGOXIN [Concomitant]

REACTIONS (2)
  - FEEDING DISORDER [None]
  - WEIGHT DECREASED [None]
